FAERS Safety Report 16701887 (Version 2)
Quarter: 2019Q3

REPORT INFORMATION
  Report Type: Spontaneous
  Country: BE (occurrence: BE)
  Receive Date: 20190814
  Receipt Date: 20190823
  Transmission Date: 20191004
  Serious: Yes (Other)
  Sender: FDA-Public Use
  Company Number: BE-PFIZER INC-2019344406

PATIENT
  Age: 70 Year
  Sex: Female
  Weight: 67 kg

DRUGS (5)
  1. ASAFLOW [Suspect]
     Active Substance: ASPIRIN
     Dosage: 80 MG, DAILY
     Route: 048
  2. LYRICA [Suspect]
     Active Substance: PREGABALIN
     Dosage: 300 MG, DAILY
     Route: 048
  3. LETROZOLE. [Concomitant]
     Active Substance: LETROZOLE
     Dosage: 2.5 MG, DAILY
     Route: 048
     Dates: start: 20190701
  4. PACLITAXEL FRESENIUS KABI [Suspect]
     Active Substance: PACLITAXEL
     Indication: BREAST CANCER
     Dosage: 140 MG, WEEKLY
     Route: 042
     Dates: start: 20190320, end: 20190529
  5. HERCEPTIN [Suspect]
     Active Substance: TRASTUZUMAB
     Indication: BREAST CANCER
     Dosage: 600 MG, EVERY 3 WEEKS
     Route: 058
     Dates: start: 20190320, end: 20190703

REACTIONS (5)
  - Interstitial lung disease [Recovering/Resolving]
  - Toxicity to various agents [Recovering/Resolving]
  - Lung infiltration [Recovering/Resolving]
  - Dyspnoea exertional [Recovering/Resolving]
  - Lymphocyte count decreased [Unknown]

NARRATIVE: CASE EVENT DATE: 20190619
